FAERS Safety Report 7693564-6 (Version None)
Quarter: 2011Q3

REPORT INFORMATION
  Report Type: 
  Country: None (occurrence: None)
  Receive Date: 20110819
  Receipt Date: 20110810
  Transmission Date: 20111222
  Serious: Yes (Other)
  Sender: FDA-Public Use
  Company Number: PHHY2011AU73811

PATIENT

DRUGS (1)
  1. VENLAFAXINE [Suspect]
     Dosage: UNK UKN, UNK

REACTIONS (1)
  - STRESS CARDIOMYOPATHY [None]
